FAERS Safety Report 24118426 (Version 2)
Quarter: 2024Q3

REPORT INFORMATION
  Report Type: Spontaneous
  Country: GB (occurrence: None)
  Receive Date: 20240722
  Receipt Date: 20240730
  Transmission Date: 20241017
  Serious: Yes (Other)
  Sender: MDD OPERATIONS
  Company Number: GB-ZAMBON-202401637GBR

PATIENT
  Sex: Male

DRUGS (4)
  1. SAFINAMIDE [Suspect]
     Active Substance: SAFINAMIDE
     Indication: Parkinson^s disease
     Dosage: NOT PROVIDED
  2. SAFINAMIDE [Suspect]
     Active Substance: SAFINAMIDE
     Route: 048
     Dates: start: 20191202
  3. SAFINAMIDE [Suspect]
     Active Substance: SAFINAMIDE
     Route: 048
     Dates: start: 202002, end: 20220420
  4. CLONAZEPAM [Concomitant]
     Active Substance: CLONAZEPAM
     Dosage: NOT PROVIDED
     Dates: start: 202002

REACTIONS (9)
  - Delirium [Recovered/Resolved]
  - Knee arthroplasty [Unknown]
  - Hallucination [Recovered/Resolved]
  - Depression [Recovered/Resolved]
  - Cognitive disorder [Recovered/Resolved]
  - Agitation [Recovered/Resolved]
  - Psychotic disorder [Recovered/Resolved]
  - Insomnia [Recovered/Resolved]
  - Anxiety [Recovered/Resolved]

NARRATIVE: CASE EVENT DATE: 20210118
